FAERS Safety Report 10622628 (Version 1)
Quarter: 2014Q4

REPORT INFORMATION
  Report Type: Spontaneous
  Country: US (occurrence: None)
  Receive Date: 20141202
  Receipt Date: 20141202
  Transmission Date: 20150529
  Serious: Yes (Other)
  Sender: FDA-Public Use
  Company Number: None

PATIENT
  Age: 55 Year
  Sex: Female

DRUGS (1)
  1. AMPYRA [Suspect]
     Active Substance: DALFAMPRIDINE
     Route: 048
     Dates: start: 20141027

REACTIONS (4)
  - Neutrophil count increased [None]
  - White blood cell count decreased [None]
  - Blood alkaline phosphatase increased [None]
  - Lymphocyte count decreased [None]

NARRATIVE: CASE EVENT DATE: 20141120
